FAERS Safety Report 5690378-3 (Version None)
Quarter: 2008Q1

REPORT INFORMATION
  Report Type: 
  Country: None (occurrence: None)
  Receive Date: 20080331
  Receipt Date: 20080331
  Transmission Date: 20080703
  Serious: Yes (Other)
  Sender: FDA-Public Use
  Company Number: None

PATIENT
  Age: 8 Year
  Sex: Male
  Weight: 22.6799 kg

DRUGS (1)
  1. SINGULAIR [Suspect]
     Indication: ASTHMA
     Dosage: 5 MG ONCE DAILY PO
     Route: 048
     Dates: start: 20040401, end: 20080115

REACTIONS (5)
  - ANXIETY [None]
  - CRYING [None]
  - ENURESIS [None]
  - ONYCHOPHAGIA [None]
  - SCHOOL REFUSAL [None]
